FAERS Safety Report 6724595 (Version 7)
Quarter: 2012Q4

REPORT INFORMATION
  Report Type: 
  Country: US (occurrence: US)
  Receive Date: 20080812
  Receipt Date: 20120910
  Transmission Date: 20130627
  Serious: Yes (Other)
  Sender: FDA-Public Use
  Company Number: US-ROCHE-552218

PATIENT
  Age: 14 Year
  Sex: Male
  Weight: 73.5 kg

DRUGS (9)
  1. ACCUTANE [Suspect]
     Indication: ACNE CYSTIC
     Dosage: ACCUTANE DISPENSED ON 8/19/02, 10/15/02, 11/12/02, 12/18/02, 4/2/03,5/1/03,6/27/03 AND 8/4/03.
     Route: 065
     Dates: start: 20010210, end: 200109
  2. ACCUTANE [Suspect]
     Route: 065
     Dates: start: 20020718, end: 200212
  3. ACCUTANE [Suspect]
     Dosage: AUGUST 2003 40 MG QD.
     Route: 065
     Dates: start: 20030402, end: 200309
  4. ACCUTANE [Suspect]
     Route: 065
     Dates: start: 200410, end: 200504
  5. AMNESTEEM [Suspect]
     Indication: ACNE
     Dosage: DISPENSED ON 1/22/03 AND 2/26/03
     Route: 065
     Dates: start: 20030122, end: 20030328
  6. SOTRET [Suspect]
     Indication: ACNE
     Dosage: DISPENSED ON 10/6/04, 11/10/04, 12/9/04, 1/17/05, 2/24/05, 4/13/05
     Route: 065
     Dates: start: 20041006, end: 20050513
  7. ENTOCORT EC [Concomitant]
     Route: 065
  8. DYAZIDE [Concomitant]
     Route: 065
  9. AZELEX [Concomitant]
     Indication: ACNE
     Route: 065

REACTIONS (22)
  - Inflammatory bowel disease [Unknown]
  - Crohn^s disease [Unknown]
  - Attention deficit/hyperactivity disorder [Not Recovered/Not Resolved]
  - Stress [Unknown]
  - Chapped lips [Unknown]
  - Xerosis [Recovering/Resolving]
  - Depression [Not Recovered/Not Resolved]
  - Cheilitis [Unknown]
  - Bronchitis [Unknown]
  - Mitral valve prolapse [Unknown]
  - Tricuspid valve incompetence [Unknown]
  - Ingrown hair [Unknown]
  - Hypertension [Unknown]
  - Aphthous stomatitis [Unknown]
  - Dysuria [Recovered/Resolved]
  - Sacroiliitis [Unknown]
  - Skin irritation [Unknown]
  - Rash [Unknown]
  - Tinea pedis [Unknown]
  - Laceration [Unknown]
  - Viral pharyngitis [Unknown]
  - Aphthous stomatitis [Unknown]
